FAERS Safety Report 23658821 (Version 1)
Quarter: 2024Q1

REPORT INFORMATION
  Report Type: Spontaneous
  Country: US (occurrence: None)
  Receive Date: 20240321
  Receipt Date: 20240321
  Transmission Date: 20240410
  Serious: Yes (Other)
  Sender: FDA-Public Use
  Company Number: 2024A062446

PATIENT

DRUGS (1)
  1. BYETTA [Suspect]
     Active Substance: EXENATIDE

REACTIONS (10)
  - Retinopathy [Unknown]
  - Macular degeneration [Unknown]
  - Type 2 diabetes mellitus [Unknown]
  - Thrombophlebitis [Unknown]
  - Hypothyroidism [Unknown]
  - Chronic obstructive pulmonary disease [Unknown]
  - Asthma [Unknown]
  - Back pain [Unknown]
  - Road traffic accident [Unknown]
  - Hypersensitivity [Unknown]
